FAERS Safety Report 14231850 (Version 2)
Quarter: 2017Q4

REPORT INFORMATION
  Report Type: Spontaneous
  Country: DE (occurrence: DE)
  Receive Date: 20171128
  Receipt Date: 20171229
  Transmission Date: 20180321
  Serious: Yes (Hospitalization)
  Sender: FDA-Public Use
  Company Number: DE-SA-2017SA231633

PATIENT
  Age: 41 Year
  Sex: Female
  Weight: 75 kg

DRUGS (5)
  1. LEMTRADA [Suspect]
     Active Substance: ALEMTUZUMAB
     Indication: MULTIPLE SCLEROSIS
     Route: 041
     Dates: start: 20170125, end: 20170127
  2. EUTHYROX [Concomitant]
     Active Substance: LEVOTHYROXINE SODIUM
     Indication: HYPOTHYROIDISM
     Route: 048
     Dates: start: 201605
  3. RESTEX [Concomitant]
     Active Substance: BENSERAZIDE
     Indication: RESTLESS LEGS SYNDROME
     Dosage: DOSE: 50 (UNITS NOT PROVIDED)
     Route: 048
     Dates: start: 201712
  4. CITALOPRAM [Concomitant]
     Active Substance: CITALOPRAM HYDROBROMIDE
     Indication: DEPRESSION
     Route: 048
     Dates: start: 201605
  5. LEMTRADA [Suspect]
     Active Substance: ALEMTUZUMAB
     Indication: MULTIPLE SCLEROSIS
     Route: 041
     Dates: start: 20160215, end: 20160219

REACTIONS (11)
  - Adjustment disorder with depressed mood [Unknown]
  - Uterine leiomyoma [Unknown]
  - Menorrhagia [Unknown]
  - Uterine enlargement [Unknown]
  - Hypothyroidism [Unknown]
  - Appendicitis [Unknown]
  - Peritoneal disorder [Unknown]
  - Abdominal pain lower [Recovered/Resolved]
  - Dysmenorrhoea [Unknown]
  - Inflammatory marker increased [Recovering/Resolving]
  - Restless legs syndrome [Unknown]
